FAERS Safety Report 9884464 (Version 1)
Quarter: 2014Q1

REPORT INFORMATION
  Report Type: Spontaneous
  Country: US (occurrence: None)
  Receive Date: 20140207
  Receipt Date: 20140207
  Transmission Date: 20141002
  Serious: No
  Sender: FDA-Public Use
  Company Number: None

PATIENT
  Age: 54 Year
  Sex: Female
  Weight: 83.92 kg

DRUGS (2)
  1. ESCITALOPRAM 10 MG [Suspect]
     Indication: ANXIETY
     Dosage: 1 PILL ONCE DAILY ORAL
     Route: 048
  2. ESCITALOPRAM 10 MG [Suspect]
     Indication: DEPRESSION
     Dosage: 1 PILL ONCE DAILY ORAL
     Route: 048

REACTIONS (2)
  - Product substitution issue [None]
  - Drug ineffective [None]
